FAERS Safety Report 10034615 (Version 1)
Quarter: 2014Q1

REPORT INFORMATION
  Report Type: Spontaneous
  Country: US (occurrence: US)
  Receive Date: 20140325
  Receipt Date: 20140325
  Transmission Date: 20141002
  Serious: Yes (Death)
  Sender: FDA-Public Use
  Company Number: US-ROCHE-1371198

PATIENT
  Age: 53 Year
  Sex: Female

DRUGS (22)
  1. DIAZEPAM [Suspect]
     Indication: PRODUCT USED FOR UNKNOWN INDICATION
     Route: 048
  2. DIAZEPAM [Suspect]
     Dosage: OVERDOSE
     Route: 048
  3. METFORMIN [Suspect]
     Indication: PRODUCT USED FOR UNKNOWN INDICATION
     Route: 048
  4. METFORMIN [Suspect]
     Dosage: OVERDOSE
     Route: 048
  5. BUPROPION [Suspect]
     Indication: PRODUCT USED FOR UNKNOWN INDICATION
     Route: 048
  6. BUPROPION [Suspect]
     Route: 048
  7. GABAPENTIN [Suspect]
     Indication: PRODUCT USED FOR UNKNOWN INDICATION
     Route: 048
  8. GABAPENTIN [Suspect]
     Route: 048
  9. DULOXETINE [Suspect]
     Indication: PRODUCT USED FOR UNKNOWN INDICATION
     Route: 048
  10. DULOXETINE [Suspect]
     Route: 048
  11. LISINOPRIL [Suspect]
     Indication: PRODUCT USED FOR UNKNOWN INDICATION
     Route: 048
  12. LISINOPRIL [Suspect]
     Route: 048
  13. OXYBUTYNIN [Suspect]
     Indication: PRODUCT USED FOR UNKNOWN INDICATION
     Route: 048
  14. OXYBUTYNIN [Suspect]
     Route: 048
  15. MIRTAZAPINE [Suspect]
     Indication: PRODUCT USED FOR UNKNOWN INDICATION
     Route: 048
  16. MIRTAZAPINE [Suspect]
     Route: 048
  17. LOVASTATIN [Suspect]
     Indication: PRODUCT USED FOR UNKNOWN INDICATION
     Route: 048
  18. LOVASTATIN [Suspect]
     Route: 048
  19. VALPROIC ACID [Suspect]
     Indication: PRODUCT USED FOR UNKNOWN INDICATION
     Route: 048
  20. VALPROIC ACID [Suspect]
     Route: 048
  21. ACETAMINOPHEN [Suspect]
     Indication: PRODUCT USED FOR UNKNOWN INDICATION
     Route: 048
  22. ACETAMINOPHEN [Suspect]
     Route: 048

REACTIONS (1)
  - Toxicity to various agents [Fatal]
